FAERS Safety Report 18183358 (Version 2)
Quarter: 2020Q3

REPORT INFORMATION
  Report Type: Spontaneous
  Country: US (occurrence: US)
  Receive Date: 20200822
  Receipt Date: 20200901
  Transmission Date: 20201103
  Serious: No
  Sender: FDA-Public Use
  Company Number: US-JNJFOC-20200829629

PATIENT
  Age: 27 Year
  Sex: Male

DRUGS (1)
  1. ROGAINE [Suspect]
     Active Substance: MINOXIDIL
     Indication: ALOPECIA
     Dosage: WHATEVER THE INSTRUCTIONS SAID TWICE DAILY?PRODUCT WAS LAST ADMINISTERED ON AUG/2020
     Route: 061
     Dates: start: 202003

REACTIONS (1)
  - Drug ineffective [Unknown]
